FAERS Safety Report 9817894 (Version 1)
Quarter: 2014Q1

REPORT INFORMATION
  Report Type: Spontaneous
  Country: CA (occurrence: CA)
  Receive Date: 20140115
  Receipt Date: 20140115
  Transmission Date: 20141002
  Serious: Yes (Hospitalization)
  Sender: FDA-Public Use
  Company Number: CA-ASTRAZENECA-2014SE01217

PATIENT
  Age: 65 Year
  Sex: Female
  Weight: 88.5 kg

DRUGS (7)
  1. CRESTOR [Suspect]
     Route: 048
  2. ASPIRIN [Suspect]
     Route: 065
  3. ZOLOFT [Suspect]
     Route: 065
  4. COLD-FX [Suspect]
     Route: 065
  5. ERGOCALCIFEROL [Suspect]
     Route: 065
  6. FISH OIL [Suspect]
     Route: 065
  7. VITAMIN B12 [Suspect]
     Route: 065

REACTIONS (5)
  - Blood pressure increased [Recovered/Resolved]
  - Chest pain [Recovered/Resolved]
  - Discomfort [Recovered/Resolved]
  - Malaise [Recovered/Resolved]
  - Headache [Recovered/Resolved]
